FAERS Safety Report 6146632-4 (Version None)
Quarter: 2009Q2

REPORT INFORMATION
  Report Type: 
  Country: None (occurrence: None)
  Receive Date: 20090403
  Receipt Date: 20090327
  Transmission Date: 20091009
  Serious: Yes (Hospitalization)
  Sender: FDA-Public Use
  Company Number: 2009SP003140

PATIENT
  Age: 50 Year
  Sex: Female

DRUGS (4)
  1. PEG-INTRON [Suspect]
     Indication: HEPATITIS C
     Dosage: 80 MCG;QW;SC
     Route: 058
     Dates: start: 20090122
  2. RIBAVIRIN [Suspect]
     Indication: HEPATITIS C
     Dosage: 400 MG;BID;PO
     Route: 048
     Dates: start: 20090122
  3. LITHIUM CARBONATE [Concomitant]
  4. DEPAKOTE [Concomitant]

REACTIONS (7)
  - CONFUSIONAL STATE [None]
  - DELUSION [None]
  - HYPOKALAEMIA [None]
  - INJECTION SITE ERYTHEMA [None]
  - MEMORY IMPAIRMENT [None]
  - RENAL FAILURE ACUTE [None]
  - THERAPEUTIC AGENT TOXICITY [None]
